APPROVED DRUG PRODUCT: STILBESTROL
Active Ingredient: DIETHYLSTILBESTROL
Strength: 0.5MG/ML
Dosage Form/Route: INJECTABLE;INJECTION
Application: N004056 | Product #004
Applicant: BRISTOL MYERS SQUIBB
Approved: Approved Prior to Jan 1, 1982 | RLD: No | RS: No | Type: DISCN